FAERS Safety Report 6247196-7 (Version None)
Quarter: 2009Q2

REPORT INFORMATION
  Report Type: 
  Country: None (occurrence: None)
  Receive Date: 20090626
  Receipt Date: 20090616
  Transmission Date: 20091009
  Serious: Yes (Other)
  Sender: FDA-Public Use
  Company Number: GB-PFIZER INC-2009227404

PATIENT
  Age: 27 Year

DRUGS (4)
  1. CHAMPIX [Suspect]
     Indication: SMOKING CESSATION THERAPY
     Dosage: UNK
     Route: 048
     Dates: start: 20090501, end: 20090519
  2. ACETAMINOPHEN W/ CODEINE [Concomitant]
     Dosage: UNK
     Route: 048
  3. ORLISTAT [Concomitant]
     Indication: BODY MASS INDEX INCREASED
     Dosage: 120 MG, UNK
     Route: 048
     Dates: start: 20090501, end: 20090503
  4. OTOSPORIN [Concomitant]
     Indication: EAR INFECTION
     Dosage: UNK
     Route: 061
     Dates: start: 20090416, end: 20090425

REACTIONS (2)
  - MOOD ALTERED [None]
  - SUICIDAL IDEATION [None]
